FAERS Safety Report 10067857 (Version 2)
Quarter: 2014Q2

REPORT INFORMATION
  Report Type: Spontaneous
  Country: JP (occurrence: JP)
  Receive Date: 20140409
  Receipt Date: 20140429
  Transmission Date: 20141212
  Serious: Yes (Other)
  Sender: FDA-Public Use
  Company Number: PHHY2014JP041849

PATIENT
  Sex: 0

DRUGS (1)
  1. ZOMETA [Suspect]
     Dosage: UNK UKN, UNK
     Route: 041

REACTIONS (1)
  - Osteonecrosis of jaw [Unknown]
